FAERS Safety Report 5581837-2 (Version None)
Quarter: 2008Q1

REPORT INFORMATION
  Report Type: 
  Country: None (occurrence: None)
  Receive Date: 20080104
  Receipt Date: 20071225
  Transmission Date: 20080703
  Serious: Yes (Hospitalization)
  Sender: FDA-Public Use
  Company Number: JP-WYE-H01874207

PATIENT
  Sex: Male
  Weight: 54 kg

DRUGS (4)
  1. MYLOTARG [Suspect]
     Indication: ACUTE MYELOID LEUKAEMIA RECURRENT
     Route: 041
     Dates: start: 20070812, end: 20070812
  2. MYLOTARG [Suspect]
     Route: 041
     Dates: start: 20070921, end: 20070921
  3. CYTARABINE [Suspect]
     Indication: ACUTE MYELOID LEUKAEMIA RECURRENT
     Dosage: 100 MG (1 TO 7 TIMES/DAY)
     Route: 042
     Dates: start: 20070809, end: 20070815
  4. IDARUBICIN HCL [Suspect]
     Indication: ACUTE MYELOID LEUKAEMIA RECURRENT
     Dosage: 12 MG (1 TO 3 TIMES/DAY)
     Route: 042
     Dates: start: 20070809, end: 20070815

REACTIONS (6)
  - ANAEMIA [None]
  - ANOREXIA [None]
  - FEBRILE NEUTROPENIA [None]
  - MALAISE [None]
  - NEUTROPHIL COUNT DECREASED [None]
  - PLATELET COUNT DECREASED [None]
